FAERS Safety Report 25085103 (Version 1)
Quarter: 2025Q1

REPORT INFORMATION
  Report Type: Spontaneous
  Country: US (occurrence: US)
  Receive Date: 20250317
  Receipt Date: 20250317
  Transmission Date: 20250409
  Serious: No
  Sender: MERCK SHARP & DOHME LLC
  Company Number: US-009507513-2263578

PATIENT
  Sex: Female
  Weight: 35.38 kg

DRUGS (25)
  1. WINREVAIR [Suspect]
     Active Substance: SOTATERCEPT-CSRK
  2. WINREVAIR [Suspect]
     Active Substance: SOTATERCEPT-CSRK
  3. WINREVAIR [Suspect]
     Active Substance: SOTATERCEPT-CSRK
  4. WINREVAIR [Suspect]
     Active Substance: SOTATERCEPT-CSRK
  5. TREPROSTINIL [Suspect]
     Active Substance: TREPROSTINIL
     Indication: Pulmonary arterial hypertension
     Route: 042
     Dates: start: 20221215
  6. VITAMIN C [Concomitant]
     Active Substance: ASCORBIC ACID
  7. BENLYSTA [Concomitant]
     Active Substance: BELIMUMAB
  8. MYCOPHENOLATE MOFETIL [Concomitant]
     Active Substance: MYCOPHENOLATE MOFETIL
  9. PREDNISONE [Concomitant]
     Active Substance: PREDNISONE
  10. DIPHENOXYLATEATROPINE [Concomitant]
  11. PANTOPRAZOLE SODIUM [Concomitant]
     Active Substance: PANTOPRAZOLE SODIUM
  12. ALLOPURINOL [Concomitant]
     Active Substance: ALLOPURINOL
  13. TADALAFIL [Concomitant]
     Active Substance: TADALAFIL
  14. POTASSIUM CHLORIDE [Concomitant]
     Active Substance: POTASSIUM CHLORIDE
  15. GLEEVEC [Concomitant]
     Active Substance: IMATINIB MESYLATE
  16. LETAIRIS [Concomitant]
     Active Substance: AMBRISENTAN
  17. CHLORTHALIDONE [Concomitant]
     Active Substance: CHLORTHALIDONE
  18. VITAMINS [Concomitant]
     Active Substance: VITAMINS
     Route: 048
  19. ASPIRIN [Concomitant]
     Active Substance: ASPIRIN
  20. ACETAMINOPHEN\DICHLORALPHENAZONE\ISOMETHEPTENE [Concomitant]
     Active Substance: ACETAMINOPHEN\DICHLORALPHENAZONE\ISOMETHEPTENE
  21. OXYGEN [Concomitant]
     Active Substance: OXYGEN
  22. FOSAMAX [Concomitant]
     Active Substance: ALENDRONATE SODIUM
  23. ACETAMINOPHEN [Concomitant]
     Active Substance: ACETAMINOPHEN
  24. LEVOTHYROXINE SODIUM [Concomitant]
     Active Substance: LEVOTHYROXINE SODIUM
  25. ONDANSETRON HYDROCHLORIDE [Concomitant]
     Active Substance: ONDANSETRON HYDROCHLORIDE

REACTIONS (2)
  - Nausea [Unknown]
  - Headache [Unknown]
